FAERS Safety Report 26109631 (Version 1)
Quarter: 2025Q4

REPORT INFORMATION
  Report Type: Other
  Country: US (occurrence: US)
  Receive Date: 20251201
  Receipt Date: 20251201
  Transmission Date: 20260117
  Serious: Yes (Other)
  Sender: SHEFFIELD
  Company Number: US-Sheffield Pharmaceuticals, LLC-2189564

PATIENT
  Sex: Female

DRUGS (2)
  1. NO DRIP SEVERE ANEFRIN NASAL [Suspect]
     Active Substance: OXYMETAZOLINE HYDROCHLORIDE
     Indication: Nasal congestion
     Dates: start: 20240127
  2. WALGREENS ANEFRIN SEVERE CONGESTION NASAL [Suspect]
     Active Substance: OXYMETAZOLINE HYDROCHLORIDE
     Dates: start: 20240127

REACTIONS (1)
  - Chemical burn of skin [Unknown]

NARRATIVE: CASE EVENT DATE: 20240127
